FAERS Safety Report 17169445 (Version 3)
Quarter: 2020Q1

REPORT INFORMATION
  Report Type: Report from Study
  Country: DE (occurrence: DE)
  Receive Date: 20191218
  Receipt Date: 20200310
  Transmission Date: 20200409
  Serious: Yes (Hospitalization, Other)
  Sender: FDA-Public Use
  Company Number: NVSC2019DE072746

PATIENT
  Sex: Male

DRUGS (15)
  1. COSENTYX [Suspect]
     Active Substance: SECUKINUMAB
     Dosage: 150 MG (PREFILLED PEN)
     Route: 065
     Dates: start: 20190205
  2. COSENTYX [Suspect]
     Active Substance: SECUKINUMAB
     Dosage: 150 MG (PREFILLED PEN)
     Route: 065
     Dates: start: 20191116
  3. COSENTYX [Suspect]
     Active Substance: SECUKINUMAB
     Indication: ANKYLOSING SPONDYLITIS
     Dosage: 150 MG (PREFILLED PEN)
     Route: 065
     Dates: start: 20190129
  4. COSENTYX [Suspect]
     Active Substance: SECUKINUMAB
     Dosage: 150 MG (PREFILLED PEN)
     Route: 065
     Dates: start: 20190321
  5. COSENTYX [Suspect]
     Active Substance: SECUKINUMAB
     Dosage: 150 MG (PREFILLED PEN)
     Route: 065
     Dates: start: 20190418
  6. COSENTYX [Suspect]
     Active Substance: SECUKINUMAB
     Dosage: 150 MG (PREFILLED PEN)
     Route: 065
     Dates: start: 20190516
  7. COSENTYX [Suspect]
     Active Substance: SECUKINUMAB
     Dosage: 150 MG (PREFILLED PEN)
     Route: 065
     Dates: start: 20190716
  8. COSENTYX [Suspect]
     Active Substance: SECUKINUMAB
     Dosage: 150 MG (PREFILLED PEN)
     Route: 065
     Dates: start: 20190307
  9. COSENTYX [Suspect]
     Active Substance: SECUKINUMAB
     Dosage: 150 MG (PREFILLED PEN)
     Route: 065
     Dates: start: 20190816
  10. COSENTYX [Suspect]
     Active Substance: SECUKINUMAB
     Dosage: 150 MG (PREFILLED PEN)
     Route: 065
     Dates: start: 20190314
  11. COSENTYX [Suspect]
     Active Substance: SECUKINUMAB
     Dosage: 150 MG (PREFILLED PEN)
     Route: 065
     Dates: start: 20190922
  12. IBUPROFEN. [Concomitant]
     Active Substance: IBUPROFEN
     Indication: ANKYLOSING SPONDYLITIS
     Dosage: 500 MG, QID
     Route: 048
  13. COSENTYX [Suspect]
     Active Substance: SECUKINUMAB
     Dosage: 150 MG (PREFILLED PEN)
     Route: 065
     Dates: start: 20190616
  14. COSENTYX [Suspect]
     Active Substance: SECUKINUMAB
     Dosage: 150 MG (PREFILLED PEN)
     Route: 065
     Dates: start: 20191022
  15. L-THYROXINE [Concomitant]
     Active Substance: LEVOTHYROXINE
     Indication: HYPOTHYROIDISM
     Dosage: 100 UG, QD
     Route: 048

REACTIONS (2)
  - Haemorrhoids thrombosed [Recovered/Resolved]
  - Campylobacter gastroenteritis [Recovered/Resolved]

NARRATIVE: CASE EVENT DATE: 20191101
